FAERS Safety Report 8539789 (Version 2)
Quarter: 2012Q4

REPORT INFORMATION
  Report Type: Spontaneous
  Country: US (occurrence: None)
  Receive Date: 20120424
  Receipt Date: 20120816
  Transmission Date: 20130627
  Serious: Yes (Hospitalization)
  Sender: FDA-Public Use
  Company Number: US-008220

PATIENT
  Age: 54 Year
  Sex: Female

DRUGS (8)
  1. TRANEXAMIC ACID [Suspect]
     Indication: MENORRHAGIA
     Dosage: (1300 MG TID)
     Dates: start: 201204
  2. NYSTATIN [Concomitant]
  3. HYDROCHLOROTHIAZIDE [Concomitant]
  4. LOVASTATIN [Concomitant]
  5. FOLIC ACID [Concomitant]
  6. ASPIRIN [Concomitant]
  7. CALTRATE WITH VITAMIN D [Concomitant]
  8. ORAL CONTRACEPTIVE NOS [Suspect]
     Route: 048
     Dates: start: 201202, end: 201204

REACTIONS (4)
  - Pulmonary embolism [None]
  - Blood pressure diastolic increased [None]
  - Haemoglobin decreased [None]
  - Fibrin D dimer increased [None]
